FAERS Safety Report 6458443-0 (Version None)
Quarter: 2009Q4

REPORT INFORMATION
  Report Type: 
  Country: None (occurrence: None)
  Receive Date: 20091126
  Receipt Date: 20091118
  Transmission Date: 20100525
  Serious: Yes (Hospitalization)
  Sender: FDA-Public Use
  Company Number: US-BIOGENIDEC-2007BI022358

PATIENT
  Age: 62 Year
  Sex: Female

DRUGS (10)
  1. TYSABRI [Suspect]
     Indication: MULTIPLE SCLEROSIS
     Route: 042
     Dates: start: 20070827, end: 20071101
  2. TYSABRI [Suspect]
     Route: 042
     Dates: start: 20080201, end: 20090422
  3. TYSABRI [Suspect]
     Route: 042
     Dates: start: 20090824
  4. VITAMIN B-12 [Concomitant]
  5. CYMBALTA [Concomitant]
  6. ROZAREM [Concomitant]
  7. LORTAB [Concomitant]
  8. CALCIUM WITH VITAMIN D [Concomitant]
  9. SAVELLA [Concomitant]
  10. DIAZIDE [Concomitant]

REACTIONS (10)
  - BACK INJURY [None]
  - DRUG ERUPTION [None]
  - FALL [None]
  - FEELING COLD [None]
  - FRACTURED COCCYX [None]
  - HYPOAESTHESIA FACIAL [None]
  - NIGHT SWEATS [None]
  - ORAL CANDIDIASIS [None]
  - PELVIC FRACTURE [None]
  - TRIGEMINAL NEURALGIA [None]
